FAERS Safety Report 9440633 (Version 3)
Quarter: 2013Q3

REPORT INFORMATION
  Report Type: Spontaneous
  Country: US (occurrence: US)
  Receive Date: 20130805
  Receipt Date: 20130925
  Transmission Date: 20140515
  Serious: No
  Sender: FDA-Public Use
  Company Number: US-PFIZER INC-2013226648

PATIENT
  Age: 39 Year
  Sex: Female
  Weight: 54 kg

DRUGS (1)
  1. ADVIL [Suspect]
     Indication: NECK PAIN
     Dosage: 200 MG, FOUR TIMES A DAY

REACTIONS (3)
  - Poor quality drug administered [Unknown]
  - Headache [Not Recovered/Not Resolved]
  - Product colour issue [Unknown]
